FAERS Safety Report 6794828-0 (Version None)
Quarter: 2010Q2

REPORT INFORMATION
  Report Type: 
  Country: None (occurrence: None)
  Receive Date: 20100624
  Receipt Date: 20100624
  Transmission Date: 20101027
  Serious: Yes (Other)
  Sender: FDA-Public Use
  Company Number: None

PATIENT
  Age: 29 Year
  Sex: Female
  Weight: 60.3284 kg

DRUGS (1)
  1. PROPYL-THIOURACIL [Suspect]
     Indication: HYPERTHYROIDISM
     Dosage: 50 MG 3 X DAY
     Dates: start: 20070101, end: 20100101

REACTIONS (4)
  - ARTHRALGIA [None]
  - ERYTHEMA [None]
  - MYALGIA [None]
  - SWELLING [None]
